FAERS Safety Report 8230519-7 (Version None)
Quarter: 2012Q1

REPORT INFORMATION
  Report Type: 
  Country: None (occurrence: None)
  Receive Date: 20120323
  Receipt Date: 20120315
  Transmission Date: 20120608
  Serious: Yes (Hospitalization)
  Sender: FDA-Public Use
  Company Number: US-US-EMD SERONO, INC.-7119855

PATIENT
  Sex: Female

DRUGS (1)
  1. REBIF [Suspect]
     Indication: PRODUCT USED FOR UNKNOWN INDICATION
     Route: 058
     Dates: start: 20100823

REACTIONS (5)
  - FATIGUE [None]
  - SUICIDAL IDEATION [None]
  - MUSCULOSKELETAL STIFFNESS [None]
  - DEPRESSION [None]
  - PAIN [None]
